FAERS Safety Report 11095850 (Version 1)
Quarter: 2015Q2

REPORT INFORMATION
  Report Type: Report from Study
  Country: US (occurrence: US)
  Receive Date: 20150507
  Receipt Date: 20150507
  Transmission Date: 20150821
  Serious: Yes (Hospitalization)
  Sender: FDA-Public Use
  Company Number: US-ROCHE-1129372

PATIENT
  Sex: Male

DRUGS (11)
  1. NUTROPIN AQ [Suspect]
     Active Substance: SOMATROPIN
     Indication: NEPHROTIC SYNDROME
  2. PREDNISONE. [Concomitant]
     Active Substance: PREDNISONE
     Route: 048
  3. CYCLOSPORINE. [Concomitant]
     Active Substance: CYCLOSPORINE
     Route: 065
  4. LISINOPRIL. [Concomitant]
     Active Substance: LISINOPRIL
     Route: 048
  5. RITUXAN [Suspect]
     Active Substance: RITUXIMAB
     Indication: PRODUCT USED FOR UNKNOWN INDICATION
     Route: 065
     Dates: start: 200504
  6. PROGRAFT [Concomitant]
     Active Substance: TACROLIMUS
  7. NUTROPIN AQ [Suspect]
     Active Substance: SOMATROPIN
     Indication: CHRONIC KIDNEY DISEASE
     Route: 058
  8. PREDNISONE. [Concomitant]
     Active Substance: PREDNISONE
     Route: 048
  9. NUTROPIN AQ [Suspect]
     Active Substance: SOMATROPIN
     Indication: AZOTAEMIA
  10. LASIX [Concomitant]
     Active Substance: FUROSEMIDE
     Dosage: AS NEEDED
     Route: 042
     Dates: start: 20070717
  11. ALBUMIN [Concomitant]
     Active Substance: ALBUMIN (HUMAN)
     Route: 065
     Dates: start: 20070717

REACTIONS (11)
  - Drug hypersensitivity [Unknown]
  - Diabetes mellitus [Unknown]
  - Nasal mucosal disorder [Unknown]
  - Periorbital oedema [Unknown]
  - Drug intolerance [Unknown]
  - Headache [Unknown]
  - Rhinitis [Unknown]
  - Proteinuria [Unknown]
  - Nephrotic syndrome [Unknown]
  - Swelling [Unknown]
  - Tenderness [Unknown]
